FAERS Safety Report 6084537-8 (Version None)
Quarter: 2009Q1

REPORT INFORMATION
  Report Type: 
  Country: None (occurrence: None)
  Receive Date: 20090217
  Receipt Date: 20090107
  Transmission Date: 20090719
  Serious: Yes (Death)
  Sender: FDA-Public Use
  Company Number: 1-17529427

PATIENT
  Age: 51 Year
  Sex: Male

DRUGS (1)
  1. FENTANYL-50 [Suspect]
     Indication: PAIN
     Dosage: TRANSDERMAL
     Route: 062

REACTIONS (1)
  - ARRHYTHMIA [None]
